FAERS Safety Report 16827450 (Version 1)
Quarter: 2019Q4

REPORT INFORMATION
  Report Type: Spontaneous
  Country: US (occurrence: US)
  Receive Date: 20190919
  Receipt Date: 20190919
  Transmission Date: 20200122
  Serious: Yes (Other)
  Sender: FDA-Public Use
  Company Number: None

PATIENT
  Age: 36 Year
  Sex: Female

DRUGS (4)
  1. CORALITE PAIN RELIEF [Suspect]
     Active Substance: CAPSAICIN\MENTHOL
     Indication: ARTHRALGIA
     Route: 062
     Dates: start: 20190914, end: 20190917
  2. CLARITIN [Concomitant]
     Active Substance: LORATADINE
  3. CORALITE PAIN RELIEF [Suspect]
     Active Substance: CAPSAICIN\MENTHOL
     Indication: PAIN IN EXTREMITY
     Route: 062
     Dates: start: 20190914, end: 20190917
  4. AMLODIPINE BESYLATE. [Concomitant]
     Active Substance: AMLODIPINE BESYLATE

REACTIONS (1)
  - Application site pain [None]

NARRATIVE: CASE EVENT DATE: 20190917
